FAERS Safety Report 5646856-6 (Version None)
Quarter: 2008Q1

REPORT INFORMATION
  Report Type: 
  Country: None (occurrence: None)
  Receive Date: 20080303
  Receipt Date: 20080229
  Transmission Date: 20080703
  Serious: Yes (Hospitalization)
  Sender: FDA-Public Use
  Company Number: A0712660A

PATIENT

DRUGS (2)
  1. ALLI [Suspect]
     Indication: DRUG USE FOR UNKNOWN INDICATION
  2. STEROIDS [Suspect]

REACTIONS (6)
  - DECREASED APPETITE [None]
  - DYSPNOEA [None]
  - IMMOBILE [None]
  - INFLUENZA [None]
  - WEIGHT DECREASED [None]
  - WEIGHT INCREASED [None]
